FAERS Safety Report 8689290 (Version 2)
Quarter: 2015Q3

REPORT INFORMATION
  Report Type: Spontaneous
  Country: US (occurrence: US)
  Receive Date: 20120727
  Receipt Date: 20150807
  Transmission Date: 20151125
  Serious: Yes (Disabling)
  Sender: FDA-Public Use
  Company Number: US-ASTRAZENECA-2011SE76271

PATIENT
  Sex: Female
  Weight: 109.8 kg

DRUGS (9)
  1. LAMICTAL [Concomitant]
     Active Substance: LAMOTRIGINE
     Indication: BLOOD TRIGLYCERIDES INCREASED
  2. ESTRADIAL [Concomitant]
     Indication: BLOOD TRIGLYCERIDES INCREASED
  3. CYMBALTA [Concomitant]
     Active Substance: DULOXETINE HYDROCHLORIDE
     Indication: BLOOD TRIGLYCERIDES INCREASED
  4. LISINOPRIL. [Suspect]
     Active Substance: LISINOPRIL
     Indication: BLOOD TRIGLYCERIDES INCREASED
     Route: 048
  5. SEROQUEL [Suspect]
     Active Substance: QUETIAPINE FUMARATE
     Indication: BIPOLAR DISORDER
     Route: 048
  6. SEROQUEL [Suspect]
     Active Substance: QUETIAPINE FUMARATE
     Indication: SCHIZOPHRENIA
     Route: 048
  7. ALPRAZOLAM. [Concomitant]
     Active Substance: ALPRAZOLAM
     Indication: BLOOD TRIGLYCERIDES INCREASED
     Dosage: 2 MG, AS REQUIRED, UP TO 4 TIMES PER DAY
  8. SEROQUEL [Suspect]
     Active Substance: QUETIAPINE FUMARATE
     Indication: SCHIZOPHRENIA
     Route: 048
  9. SEROQUEL [Suspect]
     Active Substance: QUETIAPINE FUMARATE
     Indication: BIPOLAR DISORDER
     Route: 048

REACTIONS (7)
  - Anxiety [Unknown]
  - Product use issue [Unknown]
  - Weight decreased [Not Recovered/Not Resolved]
  - Mental disability [Not Recovered/Not Resolved]
  - Psychotic disorder [Unknown]
  - Drug prescribing error [Unknown]
  - Drug dose omission [Unknown]
